FAERS Safety Report 12356395 (Version 1)
Quarter: 2016Q2

REPORT INFORMATION
  Report Type: Spontaneous
  Country: FR (occurrence: FR)
  Receive Date: 20160511
  Receipt Date: 20160511
  Transmission Date: 20160815
  Serious: No
  Sender: FDA-Public Use
  Company Number: FR-QOL MEDICAL, LLC-1051953

PATIENT

DRUGS (1)
  1. SUCRAID [Suspect]
     Active Substance: SACROSIDASE
     Route: 048

REACTIONS (3)
  - Product colour issue [None]
  - Abdominal pain [Unknown]
  - Gastric hypermotility [Unknown]
